FAERS Safety Report 6177499-6 (Version None)
Quarter: 2009Q2

REPORT INFORMATION
  Report Type: 
  Country: None (occurrence: None)
  Receive Date: 20090504
  Receipt Date: 20090423
  Transmission Date: 20091009
  Serious: Yes (Death)
  Sender: FDA-Public Use
  Company Number: CA-AVENTIS-200819969GDDC

PATIENT
  Age: 78 Year
  Sex: Male

DRUGS (15)
  1. PLACEBO [Suspect]
     Route: 042
     Dates: start: 20080825, end: 20080825
  2. DOCETAXEL [Suspect]
     Route: 042
     Dates: start: 20080825, end: 20080825
  3. PREDNISONE [Suspect]
     Route: 048
     Dates: start: 20080604, end: 20081004
  4. COLACE [Concomitant]
     Dates: start: 20060101
  5. SENOKOT                            /00142201/ [Concomitant]
     Dates: start: 20060101
  6. LIPITOR [Concomitant]
     Dates: start: 20040101
  7. RAMIPRIL [Concomitant]
     Dates: start: 20030101
  8. GLYBURIDE [Concomitant]
     Dates: start: 19980101
  9. METFORMIN HCL [Concomitant]
     Dates: start: 19870101
  10. PROCTOSEDYL                        /01569101/ [Concomitant]
     Dates: start: 20080101
  11. CALCIUM [Concomitant]
     Dates: start: 20080604
  12. VIT D [Concomitant]
     Dates: start: 20080604
  13. URISPAS [Concomitant]
     Dates: start: 20080603
  14. LORAZEPAM [Concomitant]
     Dates: start: 20080603
  15. RABEPRAZOLE SODIUM [Concomitant]
     Dates: start: 20080806

REACTIONS (1)
  - CARDIAC DISORDER [None]
